FAERS Safety Report 4766862-3 (Version None)
Quarter: 2005Q3

REPORT INFORMATION
  Report Type: 
  Country: None (occurrence: None)
  Receive Date: 20050909
  Receipt Date: 20050902
  Transmission Date: 20060218
  Serious: Yes (Hospitalization)
  Sender: FDA-Public Use
  Company Number: 2005-132161-NL

PATIENT
  Age: 46 Year
  Sex: Female

DRUGS (2)
  1. ROCURONIUM BROMIDE [Suspect]
     Dosage: DF
  2. SUXAMETHONIUM [Suspect]
     Dosage: DF

REACTIONS (7)
  - CARDIAC ENZYMES INCREASED [None]
  - ELECTROCARDIOGRAM ST SEGMENT DEPRESSION [None]
  - ERYTHEMA [None]
  - HYPOTENSION [None]
  - RASH ERYTHEMATOUS [None]
  - SUPRAVENTRICULAR TACHYCARDIA [None]
  - TROPONIN INCREASED [None]
